FAERS Safety Report 6827279-0 (Version None)
Quarter: 2010Q3

REPORT INFORMATION
  Report Type: 
  Country: None (occurrence: None)
  Receive Date: 20100709
  Receipt Date: 20100630
  Transmission Date: 20110219
  Serious: Yes (Other)
  Sender: FDA-Public Use
  Company Number: HQWYE339520OCT03

PATIENT
  Sex: Female

DRUGS (3)
  1. PREMARIN [Suspect]
     Dosage: UNSPECIFIED DAILY FOR A NUMBER OF YEARS
     Route: 048
  2. PREMPRO [Suspect]
  3. PROVERA [Suspect]
     Dosage: UNSPECIFIED FOR A NUMBER OF YEARS
     Route: 048

REACTIONS (2)
  - BREAST CANCER METASTATIC [None]
  - BREAST NEOPLASM [None]
